FAERS Safety Report 25189562 (Version 1)
Quarter: 2025Q2

REPORT INFORMATION
  Report Type: Spontaneous
  Country: CN (occurrence: CN)
  Receive Date: 20250411
  Receipt Date: 20250411
  Transmission Date: 20250716
  Serious: Yes (Other)
  Sender: AMGEN
  Company Number: CN-AMGEN-CHNSP2025069947

PATIENT
  Age: 76 Year
  Sex: Male
  Weight: 70 kg

DRUGS (2)
  1. CARFILZOMIB [Suspect]
     Active Substance: CARFILZOMIB
     Indication: Neoplasm malignant
     Dosage: 30 MILLIGRAM, QWK, FOR 2 TIMES
     Route: 040
     Dates: start: 20250321, end: 20250327
  2. PIRARUBICIN [Concomitant]
     Active Substance: PIRARUBICIN
     Indication: Neoplasm malignant
     Dosage: 10 MILLIGRAM, QWK, FOR 2 TIMES
     Route: 040
     Dates: start: 20250321, end: 20250327

REACTIONS (1)
  - Myelosuppression [Recovering/Resolving]

NARRATIVE: CASE EVENT DATE: 20250327
